FAERS Safety Report 6081529-X (Version None)
Quarter: 2009Q1

REPORT INFORMATION
  Report Type: 
  Country: None (occurrence: None)
  Receive Date: 20090218
  Receipt Date: 20090205
  Transmission Date: 20090719
  Serious: Yes (Other)
  Sender: FDA-Public Use
  Company Number: FR-BAXTER-2009BH002133

PATIENT
  Age: 58 Year
  Sex: Male

DRUGS (5)
  1. EXTRANEAL [Suspect]
     Indication: PERITONEAL DIALYSIS
     Route: 033
     Dates: start: 20070126
  2. PHYSIOSOL IN PLASTIC CONTAINER [Suspect]
     Indication: PERITONEAL DIALYSIS
     Route: 033
     Dates: start: 20070126
  3. NUTRINEAL [Suspect]
     Indication: PERITONEAL DIALYSIS
     Route: 033
     Dates: start: 20070126
  4. PERITONEAL DIALYSIS SOLUTION [Concomitant]
     Indication: PERITONEAL DIALYSIS
     Dates: start: 20050527
  5. PERITONEAL DIALYSIS SOLUTION [Concomitant]
     Dates: start: 20060520

REACTIONS (4)
  - ANURIA [None]
  - ASCITES [None]
  - LYMPHOMA [None]
  - SCLEROSING ENCAPSULATING PERITONITIS [None]
